FAERS Safety Report 13155002 (Version 11)
Quarter: 2017Q2

REPORT INFORMATION
  Report Type: Report from Study
  Country: US (occurrence: US)
  Receive Date: 20170126
  Receipt Date: 20170511
  Transmission Date: 20170830
  Serious: Yes (Other)
  Sender: FDA-Public Use
  Company Number: US-PFIZER INC-2017024976

PATIENT
  Age: 73 Year
  Sex: Female

DRUGS (6)
  1. IBRANCE [Suspect]
     Active Substance: PALBOCICLIB
     Dosage: 75 MG, CYCLIC (DAILY 21 DAYS ON/1 WEEK OFF)
     Route: 048
     Dates: start: 20170312, end: 20170426
  2. IBRANCE [Suspect]
     Active Substance: PALBOCICLIB
     Indication: BREAST CANCER METASTATIC
     Dosage: 125 MG, DAILY
     Route: 048
     Dates: start: 20170105, end: 20170120
  3. LETROZOLE. [Concomitant]
     Active Substance: LETROZOLE
     Indication: BREAST CANCER
     Dosage: UNK, DAILY
     Dates: start: 20170105
  4. ADVIL [Concomitant]
     Active Substance: IBUPROFEN
     Dosage: UNK
  5. IBRANCE [Suspect]
     Active Substance: PALBOCICLIB
     Dosage: 100 MG, DAILY
     Route: 048
     Dates: start: 20170204, end: 20170222
  6. CALCIUM [Concomitant]
     Active Substance: CALCIUM
     Dosage: UNK

REACTIONS (14)
  - Alopecia [Recovering/Resolving]
  - Abdominal distension [Not Recovered/Not Resolved]
  - Fatigue [Not Recovered/Not Resolved]
  - Neoplasm progression [Unknown]
  - Neutrophil count decreased [Unknown]
  - Flatulence [Not Recovered/Not Resolved]
  - Laryngitis [Not Recovered/Not Resolved]
  - Bone pain [Unknown]
  - Bone marrow failure [Recovered/Resolved]
  - White blood cell count decreased [Unknown]
  - Pruritus generalised [Not Recovered/Not Resolved]
  - Throat irritation [Not Recovered/Not Resolved]
  - Neutropenia [Recovered/Resolved]
  - Leukopenia [Unknown]

NARRATIVE: CASE EVENT DATE: 2017
